FAERS Safety Report 4790519-6 (Version None)
Quarter: 2005Q4

REPORT INFORMATION
  Report Type: 
  Country: None (occurrence: None)
  Receive Date: 20051005
  Receipt Date: 20050916
  Transmission Date: 20060501
  Serious: Yes (Other)
  Sender: FDA-Public Use
  Company Number: US_0509122250

PATIENT
  Age: 61 Year
  Sex: Female

DRUGS (3)
  1. EVISTA [Suspect]
  2. FOSAMAX [Concomitant]
  3. ACTONEL [Concomitant]

REACTIONS (4)
  - BONE DENSITY DECREASED [None]
  - FEMUR FRACTURE [None]
  - PELVIC FRACTURE [None]
  - WRIST FRACTURE [None]
